FAERS Safety Report 9276633 (Version 1)
Quarter: 2013Q2

REPORT INFORMATION
  Report Type: Spontaneous
  Country: GB (occurrence: GB)
  Receive Date: 20130507
  Receipt Date: 20130507
  Transmission Date: 20140414
  Serious: Yes (Hospitalization, Other)
  Sender: FDA-Public Use
  Company Number: PHHY2013GB044681

PATIENT
  Sex: Male
  Weight: 2.69 kg

DRUGS (3)
  1. VALPROIC ACID [Suspect]
     Dosage: MATERNAL DOSE: 1000 MG, QD
     Route: 064
  2. OLANZAPINE [Suspect]
     Dosage: MATERNAL DOSE: 10 MG, QD
     Route: 064
  3. OLANZAPINE [Suspect]
     Dosage: MATERNAL DOSE: 20 MG, QD
     Route: 064

REACTIONS (5)
  - Hyperinsulinism [Unknown]
  - Hypoglycaemia [Recovering/Resolving]
  - Metabolic acidosis [Unknown]
  - Hyperinsulinaemia [Unknown]
  - Dyspnoea [Unknown]
